FAERS Safety Report 8283638-3 (Version None)
Quarter: 2012Q2

REPORT INFORMATION
  Report Type: 
  Country: None (occurrence: None)
  Receive Date: 20120413
  Receipt Date: 20120410
  Transmission Date: 20120825
  Serious: Yes (Life-Threatening)
  Sender: FDA-Public Use
  Company Number: PHHY2012BR020820

PATIENT
  Sex: Female

DRUGS (10)
  1. CARBAMAZEPINE [Suspect]
     Indication: TRIGEMINAL NEURALGIA
     Dosage: 200 MG, TID
  2. TRILEPTAL [Suspect]
     Dosage: 3 DF, DAILY
  3. TRAMADOL HYDROCHLORIDE [Suspect]
  4. CIMICIFUGA RACEMOSA [Suspect]
     Indication: HOT FLUSH
  5. METFORMIN HCL [Concomitant]
     Indication: DIABETES MELLITUS
     Dosage: 850 MG, DAILY
  6. CAPTOPRIL [Concomitant]
     Indication: HYPERTENSION
     Dosage: 50 MG, BID
  7. TIBOLONE [Concomitant]
     Indication: HOT FLUSH
     Dosage: 2.5 MG, QD
  8. PHENYTOIN [Suspect]
     Dosage: 100 MG, TID
  9. TEGRETOL-XR [Suspect]
     Dosage: 200 MG, TID
  10. DIAMICRON MR [Concomitant]
     Indication: DIABETES MELLITUS
     Dosage: 3 DF, DAILY

REACTIONS (8)
  - FEELING ABNORMAL [None]
  - PRURITUS [None]
  - VISION BLURRED [None]
  - DYSPNOEA [None]
  - FEELING DRUNK [None]
  - PALPITATIONS [None]
  - MUSCLE TWITCHING [None]
  - DIZZINESS [None]
